FAERS Safety Report 10519133 (Version 3)
Quarter: 2015Q1

REPORT INFORMATION
  Report Type: Spontaneous
  Country: US (occurrence: US)
  Receive Date: 20141015
  Receipt Date: 20150218
  Transmission Date: 20150720
  Serious: Yes (Other)
  Sender: FDA-Public Use
  Company Number: US-GLAXOSMITHKLINE-US2014GSK006444

PATIENT
  Sex: Female
  Weight: 73.92 kg

DRUGS (4)
  1. TRAZODONE [Suspect]
     Active Substance: TRAZODONE HYDROCHLORIDE
     Indication: PRODUCT USED FOR UNKNOWN INDICATION
  2. LAMICTAL [Suspect]
     Active Substance: LAMOTRIGINE
     Indication: DEPRESSION
     Dosage: 100 MG, U
     Dates: start: 2011
  3. LAMOTRIGINE. [Suspect]
     Active Substance: LAMOTRIGINE
     Indication: PRODUCT USED FOR UNKNOWN INDICATION
     Dosage: UNK
     Dates: start: 2012
  4. LACTOSE [Suspect]
     Active Substance: LACTOSE

REACTIONS (15)
  - Wheezing [Unknown]
  - Ear infection [Unknown]
  - Multiple allergies [Unknown]
  - Ear pain [Unknown]
  - Inadequate diet [Unknown]
  - Cough [Unknown]
  - Oropharyngeal pain [Unknown]
  - Otorrhoea [Unknown]
  - Dysphagia [Unknown]
  - Road traffic accident [Unknown]
  - Surgery [Unknown]
  - Otitis media [Unknown]
  - Rhinorrhoea [Unknown]
  - Upper-airway cough syndrome [Unknown]
  - Upper respiratory tract infection [Unknown]
